FAERS Safety Report 7099194-1 (Version None)
Quarter: 2010Q4

REPORT INFORMATION
  Report Type: 
  Country: None (occurrence: None)
  Receive Date: 20101104
  Receipt Date: 20101022
  Transmission Date: 20110411
  Serious: Yes (Hospitalization)
  Sender: FDA-Public Use
  Company Number: 020216

PATIENT
  Sex: Female
  Weight: 71.4 kg

DRUGS (7)
  1. LACOSAMIDE [Suspect]
     Indication: PARTIAL SEIZURES
     Dosage: (100 MG BID ORAL) ; (50 MG BID ORAL)
     Route: 048
     Dates: start: 20101004, end: 20101011
  2. LACOSAMIDE [Suspect]
     Indication: PARTIAL SEIZURES
     Dosage: (100 MG BID ORAL) ; (50 MG BID ORAL)
     Route: 048
     Dates: start: 20101011, end: 20101012
  3. KEPPRA [Concomitant]
  4. CARBATROL [Concomitant]
  5. HYDROCHLOROTHIAZIDE [Concomitant]
  6. NIFEDIPINE [Concomitant]
  7. CALCIUM [Concomitant]

REACTIONS (5)
  - BLOOD PRESSURE INCREASED [None]
  - CHEST DISCOMFORT [None]
  - DIZZINESS [None]
  - ELECTROCARDIOGRAM ABNORMAL [None]
  - HYPERHIDROSIS [None]
